FAERS Safety Report 4322566-2 (Version None)
Quarter: 2004Q1

REPORT INFORMATION
  Report Type: 
  Country: None (occurrence: None)
  Receive Date: 20040322
  Receipt Date: 20040322
  Transmission Date: 20041129
  Serious: Yes (Other)
  Sender: FDA-Public Use
  Company Number: None

PATIENT
  Age: 63 Year
  Sex: Male
  Weight: 81.6 kg

DRUGS (6)
  1. OXYBUTYNIN [Suspect]
  2. DIVALPROEX SODIUM [Concomitant]
  3. DONEPEZIL HCL [Concomitant]
  4. COUMADIN [Concomitant]
  5. ADALAT CC [Concomitant]
  6. TERAZOSIN HCL [Concomitant]

REACTIONS (2)
  - CONSTIPATION [None]
  - DRY MOUTH [None]
